FAERS Safety Report 9014279 (Version 1)
Quarter: 2013Q1

REPORT INFORMATION
  Report Type: Spontaneous
  Country: IL (occurrence: IL)
  Receive Date: 20130115
  Receipt Date: 20130115
  Transmission Date: 20140127
  Serious: Yes (Other)
  Sender: FDA-Public Use
  Company Number: PHHY2013IL003609

PATIENT
  Age: 24 Year
  Sex: Female

DRUGS (3)
  1. RITALIN [Suspect]
     Indication: ATTENTION DEFICIT/HYPERACTIVITY DISORDER
     Dosage: 20 MG, UNK
     Route: 048
  2. RITALIN [Suspect]
     Dosage: 30 MG, UNK
     Route: 048
  3. RITALIN [Suspect]
     Dosage: 40 MG, UNK

REACTIONS (2)
  - Depression [Unknown]
  - Feeling abnormal [Unknown]
